FAERS Safety Report 4367822-7 (Version None)
Quarter: 2004Q2

REPORT INFORMATION
  Report Type: 
  Country: None (occurrence: None)
  Receive Date: 20040527
  Receipt Date: 20030523
  Transmission Date: 20050107
  Serious: Yes (Hospitalization, Disabling)
  Sender: FDA-Public Use
  Company Number: ZONI001115

PATIENT
  Age: 19 Year
  Sex: Female

DRUGS (2)
  1. ZONEGRAN [Suspect]
     Indication: CONVULSION
     Dosage: 200 MG DAILY ORAL
     Route: 048
     Dates: start: 20010501, end: 20030501
  2. LAMICTAL [Concomitant]

REACTIONS (1)
  - PSYCHOTIC DISORDER [None]
